FAERS Safety Report 15144779 (Version 1)
Quarter: 2018Q3

REPORT INFORMATION
  Report Type: Spontaneous
  Country: CO (occurrence: CO)
  Receive Date: 20180713
  Receipt Date: 20180713
  Transmission Date: 20181010
  Serious: Yes (Other)
  Sender: FDA-Public Use
  Company Number: PHHY2018CO024764

PATIENT
  Age: 56 Year
  Sex: Female

DRUGS (1)
  1. ACLASTA [Suspect]
     Active Substance: ZOLEDRONIC ACID
     Indication: OSTEOPOROSIS
     Dosage: 5 MG, Q12MO
     Route: 042
     Dates: start: 20180525

REACTIONS (14)
  - Headache [Unknown]
  - Eye pain [Unknown]
  - Dyschromatopsia [Unknown]
  - Visual field defect [Unknown]
  - Muscle rigidity [Unknown]
  - Ocular hyperaemia [Unknown]
  - Retinal tear [Unknown]
  - Lacrimation increased [Unknown]
  - Uveitis [Recovering/Resolving]
  - Pain [Unknown]
  - Eye inflammation [Unknown]
  - Tachycardia [Unknown]
  - Nausea [Unknown]
  - Corneal reflex decreased [Unknown]

NARRATIVE: CASE EVENT DATE: 20180529
